FAERS Safety Report 15012121 (Version 1)
Quarter: 2018Q2

REPORT INFORMATION
  Report Type: Spontaneous
  Country: US (occurrence: US)
  Receive Date: 20180522
  Receipt Date: 20180522
  Transmission Date: 20180711
  Serious: Yes (Disabling, Other)
  Sender: FDA-Public Use
  Company Number: None

PATIENT
  Age: 69 Year
  Sex: Male
  Weight: 63.96 kg

DRUGS (2)
  1. MULTIVITAMINS [Concomitant]
     Active Substance: VITAMINS
  2. LEVOTHYROXINE GENERIC FOR THYROXINE [Suspect]
     Active Substance: LEVOTHYROXINE
     Indication: HYPOTHYROIDISM
     Dosage: ?          QUANTITY:1 DF DOSAGE FORM;?
     Route: 048
     Dates: start: 20180418, end: 20180510

REACTIONS (9)
  - Depression [None]
  - Sleep disorder [None]
  - Heart rate irregular [None]
  - Vision blurred [None]
  - Therapy change [None]
  - Somnolence [None]
  - Rash [None]
  - Lethargy [None]
  - Bedridden [None]

NARRATIVE: CASE EVENT DATE: 20180418
